FAERS Safety Report 12701346 (Version 1)
Quarter: 2016Q3

REPORT INFORMATION
  Report Type: Spontaneous
  Country: US (occurrence: None)
  Receive Date: 20160830
  Receipt Date: 20160830
  Transmission Date: 20161109
  Serious: Yes (Life-Threatening, Other)
  Sender: FDA-Public Use
  Company Number: None

PATIENT
  Age: 67 Year
  Sex: Male
  Weight: 97.52 kg

DRUGS (2)
  1. ROSUVASTATIN CA 20 MG TAB ACT (GENERIC FOR CRESTOR 20MG TAB [Suspect]
     Active Substance: ROSUVASTATIN CALCIUM
     Indication: PRODUCT USED FOR UNKNOWN INDICATION
     Dosage: 20 MG 30 PILLS ONE TABLET BY MOUTH AT BEDTIME BY MOUTH
     Route: 048
     Dates: start: 20160707, end: 20160710
  2. COQ10 [Concomitant]
     Active Substance: UBIDECARENONE

REACTIONS (7)
  - Asthenia [None]
  - Activities of daily living impaired [None]
  - Myalgia [None]
  - Gait disturbance [None]
  - Muscular weakness [None]
  - Muscle disorder [None]
  - Disorientation [None]

NARRATIVE: CASE EVENT DATE: 20160710
